FAERS Safety Report 10331538 (Version 1)
Quarter: 2014Q3

REPORT INFORMATION
  Report Type: Report from Study
  Country: AR (occurrence: AR)
  Receive Date: 20140722
  Receipt Date: 20140722
  Transmission Date: 20150326
  Serious: Yes (Other)
  Sender: FDA-Public Use
  Company Number: PHHY2014AR089548

PATIENT
  Sex: Male

DRUGS (1)
  1. RASILEZ [Suspect]
     Active Substance: ALISKIREN
     Dosage: 300 MG, UNK

REACTIONS (1)
  - Cerebrovascular accident [Unknown]
